FAERS Safety Report 10530453 (Version 1)
Quarter: 2014Q4

REPORT INFORMATION
  Report Type: Spontaneous
  Country: US (occurrence: None)
  Receive Date: 20141020
  Receipt Date: 20141020
  Transmission Date: 20150528
  Serious: No
  Sender: FDA-Public Use
  Company Number: None

PATIENT
  Age: 46 Year
  Sex: Female
  Weight: 127.01 kg

DRUGS (1)
  1. EFFEXOR GENERIC 75 MG [Suspect]
     Active Substance: VENLAFAXINE HYDROCHLORIDE
     Indication: DEPRESSION
     Route: 048
     Dates: start: 20121101, end: 20121130

REACTIONS (6)
  - Irritability [None]
  - Nightmare [None]
  - Suicidal ideation [None]
  - Depression [None]
  - Product substitution issue [None]
  - Gastrointestinal disorder [None]

NARRATIVE: CASE EVENT DATE: 201211
